FAERS Safety Report 25281299 (Version 3)
Quarter: 2025Q2

REPORT INFORMATION
  Report Type: Report from Study
  Country: US (occurrence: US)
  Receive Date: 20250508
  Receipt Date: 20250520
  Transmission Date: 20250716
  Serious: No
  Sender: SANDOZ
  Company Number: US-SANDOZ-SDZ2025US028097

PATIENT
  Age: 12 Year
  Sex: Male

DRUGS (4)
  1. OMNITROPE [Suspect]
     Active Substance: SOMATROPIN
     Indication: Hypopituitarism
     Dosage: 1.6 MG, QD,10 MG/1.5 ML SOLUTION FOR INJECTION IN CARTRIDGE
     Route: 058
  2. OMNITROPE [Suspect]
     Active Substance: SOMATROPIN
     Indication: Hypopituitarism
     Dosage: 1.6 MG, QD,10 MG/1.5 ML SOLUTION FOR INJECTION IN CARTRIDGE
     Route: 058
  3. OMNITROPE [Suspect]
     Active Substance: SOMATROPIN
     Dosage: 1.6 MG, QD,10 MG/1.5 ML SOLUTION FOR INJECTION IN CARTRIDGE
     Route: 058
     Dates: start: 20250506
  4. OMNITROPE [Suspect]
     Active Substance: SOMATROPIN
     Dosage: 1.6 MG, QD,10 MG/1.5 ML SOLUTION FOR INJECTION IN CARTRIDGE
     Route: 058
     Dates: start: 20250506

REACTIONS (3)
  - Incorrect dose administered by device [Unknown]
  - Wrong technique in device usage process [Unknown]
  - Needle issue [Unknown]

NARRATIVE: CASE EVENT DATE: 20250506
